FAERS Safety Report 7039417-8 (Version None)
Quarter: 2010Q4

REPORT INFORMATION
  Report Type: 
  Country: None (occurrence: None)
  Receive Date: 20101012
  Receipt Date: 20101005
  Transmission Date: 20110411
  Serious: Yes (Hospitalization)
  Sender: FDA-Public Use
  Company Number: US-SANOFI-AVENTIS-2010SA061262

PATIENT
  Age: 75 Year
  Sex: Female

DRUGS (7)
  1. LANTUS [Suspect]
     Indication: TYPE 2 DIABETES MELLITUS
     Dosage: DOSE:31 UNIT(S)
     Route: 058
     Dates: start: 20070101
  2. OPTICLICK [Suspect]
     Indication: TYPE 2 DIABETES MELLITUS
     Dates: start: 20070101
  3. GLUCOTROL [Concomitant]
     Dosage: 1 PILL IN THE MORNING, 1 PILL IN THE EVENING
  4. COREG [Concomitant]
     Route: 065
  5. VITAMIN E [Concomitant]
     Dates: start: 19830101
  6. ASCORBIC ACID [Concomitant]
     Dates: start: 20060101
  7. DORICO CHA (APPLE/CINNAMON) [Concomitant]

REACTIONS (4)
  - CHEST PAIN [None]
  - FATIGUE [None]
  - MYOCARDIAL INFARCTION [None]
  - STRESS [None]
